FAERS Safety Report 12526702 (Version 3)
Quarter: 2016Q4

REPORT INFORMATION
  Report Type: Other
  Country: FR (occurrence: FR)
  Receive Date: 20160705
  Receipt Date: 20161024
  Transmission Date: 20170207
  Serious: Yes (Hospitalization, Other)
  Sender: FDA-Public Use
  Company Number: FR-ASTELLAS-2016US025181

PATIENT
  Age: 50 Year
  Sex: Female

DRUGS (3)
  1. MYFORTIC [Suspect]
     Active Substance: MYCOPHENOLATE SODIUM
     Indication: PROPHYLAXIS AGAINST TRANSPLANT REJECTION
     Route: 048
     Dates: start: 201508, end: 20160602
  2. ADVAGRAF [Suspect]
     Active Substance: TACROLIMUS
     Indication: PROPHYLAXIS
     Route: 048
     Dates: start: 201508, end: 20160610
  3. GABAPENTINE [Suspect]
     Active Substance: GABAPENTIN
     Indication: NEUROPATHY PERIPHERAL
     Route: 048
     Dates: end: 20160610

REACTIONS (9)
  - Meningorrhagia [Unknown]
  - Intracranial aneurysm [Unknown]
  - Furuncle [Unknown]
  - Cerebral haemorrhage [Unknown]
  - Pancytopenia [Recovering/Resolving]
  - Staphylococcal infection [Unknown]
  - Cerebral haematoma [Unknown]
  - C-reactive protein increased [Unknown]
  - Agranulocytosis [Recovering/Resolving]

NARRATIVE: CASE EVENT DATE: 201604
